FAERS Safety Report 24680813 (Version 1)
Quarter: 2024Q4

REPORT INFORMATION
  Report Type: Report from Study
  Country: CA (occurrence: CA)
  Receive Date: 20241129
  Receipt Date: 20241129
  Transmission Date: 20250115
  Serious: Yes (Other)
  Sender: ALEXION PHARMACEUTICALS
  Company Number: CA-AstraZeneca-CH-00753225A

PATIENT

DRUGS (8)
  1. FASENRA [Suspect]
     Active Substance: BENRALIZUMAB
     Indication: Asthma
     Dosage: 30 MILLIGRAM
  2. FASENRA [Suspect]
     Active Substance: BENRALIZUMAB
     Dosage: 30 MILLIGRAM
  3. FASENRA [Suspect]
     Active Substance: BENRALIZUMAB
     Dosage: 30 MILLIGRAM
  4. FASENRA [Suspect]
     Active Substance: BENRALIZUMAB
     Dosage: 30 MILLIGRAM
  5. XOLAIR [Concomitant]
     Active Substance: OMALIZUMAB
  6. XOLAIR [Concomitant]
     Active Substance: OMALIZUMAB
     Route: 065
  7. BENRALIZUMAB [Suspect]
     Active Substance: BENRALIZUMAB
  8. BENRALIZUMAB [Suspect]
     Active Substance: BENRALIZUMAB

REACTIONS (1)
  - Polyp [Unknown]
